FAERS Safety Report 5638963-9 (Version None)
Quarter: 2008Q1

REPORT INFORMATION
  Report Type: 
  Country: None (occurrence: None)
  Receive Date: 20080222
  Receipt Date: 20080211
  Transmission Date: 20080703
  Serious: Yes (Death, Hospitalization)
  Sender: FDA-Public Use
  Company Number: 2008AL000741

PATIENT
  Age: 20 Year
  Sex: Male
  Weight: 45 kg

DRUGS (2)
  1. ACETAMINOPHEN [Suspect]
     Dosage: 1 GM; QID; PO
     Route: 048
  2. CARBAMAZEPINE [Concomitant]

REACTIONS (6)
  - ACUTE HEPATIC FAILURE [None]
  - ENCEPHALOPATHY [None]
  - GASTRIC PERFORATION [None]
  - INTERNATIONAL NORMALISED RATIO INCREASED [None]
  - MULTI-ORGAN FAILURE [None]
  - OVERDOSE [None]
